FAERS Safety Report 8203505-0 (Version None)
Quarter: 2012Q1

REPORT INFORMATION
  Report Type: 
  Country: None (occurrence: None)
  Receive Date: 20120313
  Receipt Date: 20120229
  Transmission Date: 20120608
  Serious: Yes (Hospitalization)
  Sender: FDA-Public Use
  Company Number: IT-AMGEN-ITASP2012013887

PATIENT
  Age: 67 Year
  Sex: Male

DRUGS (4)
  1. ENBREL [Suspect]
     Indication: RHEUMATOID ARTHRITIS
     Dosage: 50 MG, WEEKLY
     Route: 058
     Dates: start: 20111215, end: 20120101
  2. PREDNISONE TAB [Concomitant]
     Dosage: 5 MG, UNK
     Route: 048
  3. METHOTREXATE [Concomitant]
     Dosage: 7.5 MG, UNK
     Route: 048
  4. KETOPROFEN [Concomitant]
     Dosage: 300 MG, UNK
     Route: 048

REACTIONS (1)
  - SKIN ULCER [None]
